FAERS Safety Report 7569239-0 (Version None)
Quarter: 2011Q2

REPORT INFORMATION
  Report Type: 
  Country: None (occurrence: None)
  Receive Date: 20110623
  Receipt Date: 20110617
  Transmission Date: 20111010
  Serious: Yes (Death, Hospitalization)
  Sender: FDA-Public Use
  Company Number: PHHY2011JP50065

PATIENT
  Age: 27 Year
  Sex: Male
  Weight: 67 kg

DRUGS (3)
  1. DICLOFENAC SODIUM [Suspect]
     Indication: PAIN IN EXTREMITY
     Route: 048
     Dates: start: 20090601
  2. DICLOFENAC SODIUM [Suspect]
     Indication: NECK PAIN
  3. ANALGESICS [Concomitant]

REACTIONS (28)
  - PORPHYRIA [None]
  - PIGMENTATION DISORDER [None]
  - OCULAR ICTERUS [None]
  - GAMMA-GLUTAMYLTRANSFERASE INCREASED [None]
  - BRAIN HERNIATION [None]
  - BILIARY CIRRHOSIS [None]
  - BLOOD BILIRUBIN INCREASED [None]
  - AMMONIA INCREASED [None]
  - PROTHROMBIN TIME PROLONGED [None]
  - ABDOMINAL PAIN [None]
  - MALAISE [None]
  - LIVER DISORDER [None]
  - URINARY INCONTINENCE [None]
  - JAUNDICE [None]
  - CEREBRAL HAEMORRHAGE [None]
  - SCAR [None]
  - HEPATOSPLENOMEGALY [None]
  - UROBILINOGEN URINE INCREASED [None]
  - HEPATIC FUNCTION ABNORMAL [None]
  - DISEASE PROGRESSION [None]
  - PORPHYRIA NON-ACUTE [None]
  - ASPARTATE AMINOTRANSFERASE INCREASED [None]
  - ALANINE AMINOTRANSFERASE INCREASED [None]
  - ANAEMIA [None]
  - CONDITION AGGRAVATED [None]
  - VARICES OESOPHAGEAL [None]
  - BLOOD PRESSURE INCREASED [None]
  - THROMBOCYTOPENIA [None]
